FAERS Safety Report 8848419 (Version 1)
Quarter: 2012Q4

REPORT INFORMATION
  Report Type: 
  Country: US (occurrence: US)
  Receive Date: 20121019
  Receipt Date: 20121019
  Transmission Date: 20130627
  Serious: Yes (Other)
  Sender: FDA-Public Use
  Company Number: US-BIOGENIDEC-2012BI045306

PATIENT
  Sex: Female

DRUGS (1)
  1. AVONEX [Suspect]
     Indication: MULTIPLE SCLEROSIS
     Route: 030
     Dates: start: 20080404, end: 20090208

REACTIONS (5)
  - Thyroid cancer [Unknown]
  - Brain neoplasm malignant [Unknown]
  - Diabetes mellitus [Unknown]
  - Systemic lupus erythematosus [Unknown]
  - Sleep apnoea syndrome [Unknown]
